FAERS Safety Report 8362328 (Version 2)
Quarter: 2015Q1

REPORT INFORMATION
  Report Type: Report from Study
  Country: US (occurrence: US)
  Receive Date: 20120130
  Receipt Date: 20150220
  Transmission Date: 20150721
  Serious: Yes (Death)
  Sender: FDA-Public Use
  Company Number: US-ROCHE-1034416

PATIENT
  Age: 77 Year
  Sex: Male

DRUGS (6)
  1. ONDASETRON [Concomitant]
     Active Substance: ONDANSETRON
     Dosage: HE RECEIVED ON13/MAR/2007,  27/MAR/2007 AND 10/APR/2007
     Route: 042
  2. AVASTIN [Suspect]
     Active Substance: BEVACIZUMAB
     Indication: LUNG NEOPLASM MALIGNANT
     Dosage: HE RECEIVED ON13/MAR/2007,  27/MAR/2007 AND 10/APR/2007
     Route: 042
  3. AVASTIN [Suspect]
     Active Substance: BEVACIZUMAB
     Route: 042
  4. TYLENOL [Concomitant]
     Active Substance: ACETAMINOPHEN
  5. DECADRON [Concomitant]
     Active Substance: DEXAMETHASONE
     Route: 042
  6. TAXOTERE [Concomitant]
     Active Substance: DOCETAXEL
     Route: 042

REACTIONS (5)
  - Death [Fatal]
  - Neuropathy peripheral [Unknown]
  - Asthenia [Unknown]
  - Fatigue [Unknown]
  - Headache [Unknown]

NARRATIVE: CASE EVENT DATE: 20070507
